FAERS Safety Report 10038435 (Version 1)
Quarter: 2014Q1

REPORT INFORMATION
  Report Type: Spontaneous
  Country: CA (occurrence: CA)
  Receive Date: 20140326
  Receipt Date: 20140326
  Transmission Date: 20141002
  Serious: Yes (Hospitalization)
  Sender: FDA-Public Use
  Company Number: CA-GLAXOSMITHKLINE-A1050517A

PATIENT
  Age: 37 Year
  Sex: Female
  Weight: 88 kg

DRUGS (1)
  1. BENLYSTA [Suspect]
     Indication: SYSTEMIC LUPUS ERYTHEMATOSUS
     Dosage: 880MG SEE DOSAGE TEXT
     Route: 042
     Dates: start: 20120516

REACTIONS (6)
  - Cystitis [Recovered/Resolved]
  - Urinary tract infection [Unknown]
  - Bronchitis [Not Recovered/Not Resolved]
  - Infection [Unknown]
  - Kidney infection [Recovered/Resolved]
  - Dyspnoea [Recovered/Resolved]
